FAERS Safety Report 20427672 (Version 1)
Quarter: 2022Q1

REPORT INFORMATION
  Report Type: Report from Study
  Country: CA (occurrence: CA)
  Receive Date: 20220204
  Receipt Date: 20220204
  Transmission Date: 20220424
  Serious: No
  Sender: FDA-Public Use
  Company Number: CA-EXELIXIS-CABO-21042369

PATIENT
  Sex: Female

DRUGS (10)
  1. CABOMETYX [Suspect]
     Active Substance: CABOZANTINIB S-MALATE
     Indication: Renal cell carcinoma
     Dosage: 40 MG, QD
     Route: 048
     Dates: start: 20200728, end: 20210629
  2. BISOPROLOL [Concomitant]
     Active Substance: BISOPROLOL
  3. PANTOPRAZOLE [Concomitant]
     Active Substance: PANTOPRAZOLE
  4. IRON [Concomitant]
     Active Substance: IRON
  5. ASPIRIN [Concomitant]
     Active Substance: ASPIRIN
  6. ATORVASTATIN [Concomitant]
     Active Substance: ATORVASTATIN
  7. LINAGLIPTIN [Concomitant]
     Active Substance: LINAGLIPTIN
  8. CLOPIDOGREL [Concomitant]
     Active Substance: CLOPIDOGREL BISULFATE
  9. PERINDOPRIL [Concomitant]
     Active Substance: PERINDOPRIL
  10. IMIPRAMINE [Concomitant]
     Active Substance: IMIPRAMINE

REACTIONS (2)
  - Renal impairment [Unknown]
  - Adverse drug reaction [Unknown]
